FAERS Safety Report 8596844-5 (Version None)
Quarter: 2012Q3

REPORT INFORMATION
  Report Type: 
  Country: None (occurrence: None)
  Receive Date: 20120815
  Receipt Date: 20120809
  Transmission Date: 20120928
  Serious: Yes (Death, Life-Threatening)
  Sender: FDA-Public Use
  Company Number: TR-B.I. PHARMACEUTICALS,INC./RIDGEFIELD-2012-RO-01681RO

PATIENT
  Age: 52 Year
  Sex: Male

DRUGS (6)
  1. LITHIUM CARBONATE [Suspect]
  2. PERSANTINE [Suspect]
  3. RAMIPRIL [Suspect]
  4. CARVEDILOL [Suspect]
  5. DENAN [Suspect]
  6. ASPIRIN [Suspect]

REACTIONS (2)
  - TOXICITY TO VARIOUS AGENTS [None]
  - DEATH [None]
